FAERS Safety Report 23237803 (Version 1)
Quarter: 2023Q4

REPORT INFORMATION
  Report Type: Spontaneous
  Country: FR (occurrence: FR)
  Receive Date: 20231128
  Receipt Date: 20231128
  Transmission Date: 20240109
  Serious: Yes (Other)
  Sender: FDA-Public Use
  Company Number: None

PATIENT
  Age: 66 Year
  Sex: Female
  Weight: 49 kg

DRUGS (2)
  1. ATORVASTATIN [Interacting]
     Active Substance: ATORVASTATIN
     Indication: Hypercholesterolaemia
     Dosage: DOSE UNKNOWN, 1FP
  2. ERYTHROCIN [Interacting]
     Active Substance: ERYTHROMYCIN LACTOBIONATE
     Indication: Intestinal obstruction
     Dosage: 125MG TIMES PER_D, 1FP
     Dates: start: 20230701

REACTIONS (2)
  - Hepatic cytolysis [Recovering/Resolving]
  - Acute hepatic failure [Recovering/Resolving]

NARRATIVE: CASE EVENT DATE: 20230904
